FAERS Safety Report 20324855 (Version 1)
Quarter: 2022Q1

REPORT INFORMATION
  Report Type: Spontaneous
  Country: US (occurrence: US)
  Receive Date: 20220111
  Receipt Date: 20220111
  Transmission Date: 20220423
  Serious: No
  Sender: FDA-Public Use
  Company Number: US-009507513-2112USA010426

PATIENT
  Age: 68 Year
  Sex: Female

DRUGS (1)
  1. STROMECTOL [Suspect]
     Active Substance: IVERMECTIN
     Indication: COVID-19 treatment

REACTIONS (2)
  - Off label use [Recovered/Resolved]
  - Therapeutic response unexpected [Recovered/Resolved]
